FAERS Safety Report 17605429 (Version 1)
Quarter: 2020Q1

REPORT INFORMATION
  Report Type: Spontaneous
  Country: US (occurrence: US)
  Receive Date: 20200330
  Receipt Date: 20200330
  Transmission Date: 20200409
  Serious: Yes (Life-Threatening)
  Sender: FDA-Public Use
  Company Number: None

PATIENT
  Age: 69 Year
  Sex: Male
  Weight: 103 kg

DRUGS (1)
  1. RIBAVIRIN. [Suspect]
     Active Substance: RIBAVIRIN
     Indication: CORONA VIRUS INFECTION

REACTIONS (14)
  - Procalcitonin increased [None]
  - Oxygen saturation decreased [None]
  - Acute respiratory failure [None]
  - Nosocomial infection [None]
  - Acute kidney injury [None]
  - Acute respiratory distress syndrome [None]
  - Coronary artery disease [None]
  - Pneumonia [None]
  - Haemodialysis [None]
  - C-reactive protein increased [None]
  - Bacterial infection [None]
  - Hypoxia [None]
  - Renal tubular necrosis [None]
  - Haemoglobin decreased [None]

NARRATIVE: CASE EVENT DATE: 20200330
